FAERS Safety Report 6204985-2 (Version None)
Quarter: 2009Q2

REPORT INFORMATION
  Report Type: 
  Country: None (occurrence: None)
  Receive Date: 20090527
  Receipt Date: 20090218
  Transmission Date: 20091009
  Serious: No
  Sender: FDA-Public Use
  Company Number: US-ABBOTT-09P-163-0502689-00

PATIENT
  Sex: Male

DRUGS (11)
  1. SIMCOR [Suspect]
     Indication: HIGH DENSITY LIPOPROTEIN DECREASED
     Dates: start: 20090201
  2. SIMCOR [Suspect]
  3. SIMCOR [Suspect]
     Indication: BLOOD CHOLESTEROL INCREASED
  4. SIMCOR [Suspect]
     Indication: BLOOD TRIGLYCERIDES INCREASED
  5. ASPIRIN [Concomitant]
     Indication: DRUG USE FOR UNKNOWN INDICATION
  6. LOPRESSOR [Concomitant]
     Indication: DRUG USE FOR UNKNOWN INDICATION
  7. PLAVIX [Concomitant]
     Indication: DRUG USE FOR UNKNOWN INDICATION
  8. SYNTHROID [Concomitant]
     Indication: DRUG USE FOR UNKNOWN INDICATION
     Dates: start: 19640101
  9. BENICAR [Concomitant]
     Indication: DRUG USE FOR UNKNOWN INDICATION
  10. SIMVASTATIN [Concomitant]
     Indication: DRUG USE FOR UNKNOWN INDICATION
  11. LIPITOR [Concomitant]
     Indication: DRUG USE FOR UNKNOWN INDICATION

REACTIONS (2)
  - DISORIENTATION [None]
  - GAIT DISTURBANCE [None]
